FAERS Safety Report 5708780-X (Version None)
Quarter: 2008Q2

REPORT INFORMATION
  Report Type: 
  Country: None (occurrence: None)
  Receive Date: 20080416
  Receipt Date: 20080402
  Transmission Date: 20081010
  Serious: Yes (Other)
  Sender: FDA-Public Use
  Company Number: 18927

PATIENT
  Age: 71 Year
  Sex: Female

DRUGS (12)
  1. METHOTREXATE [Suspect]
     Indication: BREAST CANCER
     Dates: start: 19840101
  2. FLUOROURACIL [Suspect]
     Indication: BREAST CANCER
     Dates: start: 19840101
  3. ETOPOSIDE [Suspect]
     Indication: NON-HODGKIN'S LYMPHOMA
     Dates: start: 19960201, end: 19960501
  4. VINBLASTINE SULFATE [Suspect]
     Indication: NON-HODGKIN'S LYMPHOMA
     Dates: start: 19860601
  5. CYCLOPHOSPHAMIDE [Suspect]
     Indication: BREAST CANCER
  6. CYCLOPHOSPHAMIDE [Suspect]
     Indication: NON-HODGKIN'S LYMPHOMA
  7. PROCARBAZINE [Suspect]
     Indication: NON-HODGKIN'S LYMPHOMA
     Dates: start: 19860601, end: 19870401
  8. BLEOMYCIN SULFATE [Suspect]
     Indication: NON-HODGKIN'S LYMPHOMA
     Dates: start: 19960201, end: 19960501
  9. MITOXANTRONE [Suspect]
     Indication: NON-HODGKIN'S LYMPHOMA
  10. IMATINIB [Suspect]
     Dates: start: 20050201
  11. RITUXIMAB [Suspect]
  12. DOXORUBICIN HCL [Suspect]
     Indication: NON-HODGKIN'S LYMPHOMA
     Dates: start: 19960201, end: 19960501

REACTIONS (2)
  - CHRONIC MYELOID LEUKAEMIA [None]
  - NON-HODGKIN'S LYMPHOMA RECURRENT [None]
